FAERS Safety Report 6748022-X (Version None)
Quarter: 2010Q2

REPORT INFORMATION
  Report Type: 
  Country: None (occurrence: None)
  Receive Date: 20100530
  Receipt Date: 20100526
  Transmission Date: 20101027
  Serious: Yes (Other)
  Sender: FDA-Public Use
  Company Number: US-BRISTOL-MYERS SQUIBB COMPANY-15121163

PATIENT
  Age: 45 Year
  Sex: Female

DRUGS (2)
  1. ABILIFY [Suspect]
     Dosage: 1 DF:2-5 MG.
  2. PROGESTERONE [Concomitant]

REACTIONS (3)
  - DIZZINESS [None]
  - HOT FLUSH [None]
  - SYNCOPE [None]
